FAERS Safety Report 6709524-5 (Version None)
Quarter: 2010Q2

REPORT INFORMATION
  Report Type: 
  Country: None (occurrence: None)
  Receive Date: 20100504
  Receipt Date: 20100423
  Transmission Date: 20101027
  Serious: Yes (Other)
  Sender: FDA-Public Use
  Company Number: DE-PFIZER INC-2010051450

PATIENT
  Age: 76 Year
  Sex: Male

DRUGS (1)
  1. INSPRA [Suspect]
     Dosage: 25 MG, 1X/DAY
     Route: 048

REACTIONS (1)
  - GAMMA-GLUTAMYLTRANSFERASE INCREASED [None]
